FAERS Safety Report 20628819 (Version 1)
Quarter: 2022Q1

REPORT INFORMATION
  Report Type: Spontaneous
  Country: CN (occurrence: CN)
  Receive Date: 20220323
  Receipt Date: 20220323
  Transmission Date: 20220423
  Serious: Yes (Hospitalization, Other)
  Sender: FDA-Public Use
  Company Number: CN-ABBVIE-22K-035-4327548-00

PATIENT
  Age: 18 Year
  Sex: Male
  Weight: 62 kg

DRUGS (2)
  1. VALPROATE SODIUM [Suspect]
     Active Substance: VALPROATE SODIUM
     Indication: Epilepsy
     Route: 048
     Dates: start: 20200613
  2. VALPROATE SODIUM [Suspect]
     Active Substance: VALPROATE SODIUM
     Route: 048
     Dates: start: 20200727

REACTIONS (2)
  - Drug-induced liver injury [Recovering/Resolving]
  - Liver injury [Recovering/Resolving]

NARRATIVE: CASE EVENT DATE: 20200627
